FAERS Safety Report 21295640 (Version 2)
Quarter: 2022Q3

REPORT INFORMATION
  Report Type: Spontaneous
  Country: US (occurrence: US)
  Receive Date: 20220906
  Receipt Date: 20220924
  Transmission Date: 20221027
  Serious: No
  Sender: FDA-Public Use
  Company Number: US-UNITED THERAPEUTICS-UNT-2022-019157

PATIENT
  Sex: Female
  Weight: 63.946 kg

DRUGS (5)
  1. REMODULIN [Suspect]
     Active Substance: TREPROSTINIL
     Indication: Pulmonary arterial hypertension
     Dosage: UNK, CONTINUING
     Route: 058
     Dates: start: 20220808
  2. REMODULIN [Suspect]
     Active Substance: TREPROSTINIL
     Dosage: 0.008 ?G/KG (PRE-FILLED WITH 3ML PER CASSETTE; PUMP RATE 31 MCL PER HOUR), CONTINUING
     Route: 058
     Dates: start: 202208
  3. REMODULIN [Suspect]
     Active Substance: TREPROSTINIL
     Dosage: UNK, CONTINUING
     Route: 058
  4. REMODULIN [Suspect]
     Active Substance: TREPROSTINIL
     Dosage: UNK, CONTINUING (PUMP RATE 35 MCL PER HOUR)
     Route: 058
  5. OPSUMIT [Concomitant]
     Active Substance: MACITENTAN
     Indication: Product used for unknown indication
     Dosage: UNK
     Route: 065

REACTIONS (7)
  - Muscular weakness [Unknown]
  - Infusion site pain [Not Recovered/Not Resolved]
  - Infusion site inflammation [Recovering/Resolving]
  - Wrong technique in product usage process [Unknown]
  - Device use error [Unknown]
  - Product administration interrupted [Unknown]
  - Infusion site erythema [Unknown]

NARRATIVE: CASE EVENT DATE: 20220101
